FAERS Safety Report 22305441 (Version 1)
Quarter: 2023Q2

REPORT INFORMATION
  Report Type: Spontaneous
  Country: GB (occurrence: GB)
  Receive Date: 20230510
  Receipt Date: 20230510
  Transmission Date: 20230721
  Serious: Yes (Disabling)
  Sender: FDA-Public Use
  Company Number: None

PATIENT
  Sex: Female
  Weight: 70 kg

DRUGS (2)
  1. CITALOPRAM HYDROBROMIDE [Suspect]
     Active Substance: CITALOPRAM HYDROBROMIDE
     Indication: Mixed anxiety and depressive disorder
     Dosage: 20 MG
     Route: 048
     Dates: start: 20221222, end: 20230404
  2. CITALOPRAM HYDROBROMIDE [Suspect]
     Active Substance: CITALOPRAM HYDROBROMIDE
     Dosage: 10 MG
     Route: 048

REACTIONS (5)
  - Anxiety [Unknown]
  - Depression [Unknown]
  - Hyperhidrosis [Recovered/Resolved]
  - Product administered to patient of inappropriate age [Unknown]
  - Drug ineffective [Unknown]

NARRATIVE: CASE EVENT DATE: 20230223
